FAERS Safety Report 4749595-9 (Version None)
Quarter: 2005Q3

REPORT INFORMATION
  Report Type: 
  Country: None (occurrence: None)
  Receive Date: 20050819
  Receipt Date: 20050819
  Transmission Date: 20060218
  Serious: No
  Sender: FDA-Public Use
  Company Number: None

PATIENT
  Sex: Female

DRUGS (2)
  1. TRANXENE [Suspect]
     Indication: ANXIETY
     Dosage: 7.5 MG TID
     Dates: start: 20030127, end: 20050815
  2. TRANXENE [Suspect]
     Indication: EPILEPSY
     Dosage: 7.5 MG TID
     Dates: start: 20030127, end: 20050815

REACTIONS (2)
  - SUICIDAL IDEATION [None]
  - THERAPEUTIC RESPONSE UNEXPECTED WITH DRUG SUBSTITUTION [None]
